FAERS Safety Report 9384585 (Version 2)
Quarter: 2013Q3

REPORT INFORMATION
  Report Type: Spontaneous
  Country: US (occurrence: US)
  Receive Date: 20130705
  Receipt Date: 20130930
  Transmission Date: 20140515
  Serious: No
  Sender: FDA-Public Use
  Company Number: US-BAYER-2013-081897

PATIENT
  Sex: Male
  Weight: 111 kg

DRUGS (5)
  1. STAXYN (FDT/ODT) [Suspect]
     Indication: ERECTILE DYSFUNCTION
  2. STAXYN (FDT/ODT) [Suspect]
     Indication: ERECTILE DYSFUNCTION
  3. ALBUTEROL [Concomitant]
     Dosage: DAILY AS NEEDED.
  4. PRILOSEC [Concomitant]
     Indication: DYSPEPSIA
     Dosage: 1 DF, DAILY
  5. ALLEGRA [Concomitant]
     Indication: SINUS DISORDER
     Dosage: DAILLY

REACTIONS (3)
  - Feeling hot [None]
  - Drug ineffective [None]
  - Flushing [None]
